FAERS Safety Report 8583540-3 (Version None)
Quarter: 2012Q3

REPORT INFORMATION
  Report Type: 
  Country: None (occurrence: None)
  Receive Date: 20120809
  Receipt Date: 20120801
  Transmission Date: 20120928
  Serious: Yes (Hospitalization)
  Sender: FDA-Public Use
  Company Number: US-UCBSA-063052

PATIENT
  Sex: Male

DRUGS (1)
  1. VIMPAT [Suspect]
     Indication: CONVULSION
     Dosage: STRENGTH 200 MG

REACTIONS (1)
  - ARTHRITIS [None]
